FAERS Safety Report 6413995-1 (Version None)
Quarter: 2009Q4

REPORT INFORMATION
  Report Type: 
  Country: None (occurrence: None)
  Receive Date: 20091023
  Receipt Date: 20091023
  Transmission Date: 20100525
  Serious: Yes (Other)
  Sender: FDA-Public Use
  Company Number: None

PATIENT
  Age: 38 Year
  Sex: Female
  Weight: 81.1939 kg

DRUGS (1)
  1. OPANA [Suspect]
     Indication: OVERDOSE
     Dosage: 10MG EVERY 4-6 HOURS PO
     Route: 048
     Dates: start: 20091012, end: 20091021

REACTIONS (7)
  - APRAXIA [None]
  - BLOOD PRESSURE DECREASED [None]
  - DYSPNOEA [None]
  - HYPOTENSION [None]
  - MIOSIS [None]
  - OVERDOSE [None]
  - SOMNOLENCE [None]
